FAERS Safety Report 23706464 (Version 2)
Quarter: 2024Q2

REPORT INFORMATION
  Report Type: Report from Study
  Country: CO (occurrence: CO)
  Receive Date: 20240404
  Receipt Date: 20240408
  Transmission Date: 20240715
  Serious: Yes (Other)
  Sender: FDA-Public Use
  Company Number: CO-002147023-NVSC2022CO090435

PATIENT
  Sex: Male
  Weight: 71 kg

DRUGS (2)
  1. TASIGNA [Suspect]
     Active Substance: NILOTINIB
     Indication: Chronic myeloid leukaemia
     Dosage: UNK, EVERY 12 HOURS
     Route: 048
  2. TASIGNA [Suspect]
     Active Substance: NILOTINIB
     Dosage: 400 MG (EVERY 12 HOURS)
     Route: 048
     Dates: start: 20180928

REACTIONS (2)
  - Polymerase chain reaction positive [Unknown]
  - Drug ineffective [Unknown]
